FAERS Safety Report 5344425-9 (Version None)
Quarter: 2007Q2

REPORT INFORMATION
  Report Type: 
  Country: None (occurrence: None)
  Receive Date: 20070604
  Receipt Date: 20070529
  Transmission Date: 20071010
  Serious: Yes (Hospitalization)
  Sender: FDA-Public Use
  Company Number: DE-BOEHRINGER INGELHEIM PHARMACEUTICALS, INC.-2007-DE-03165DE

PATIENT
  Sex: Male

DRUGS (12)
  1. ATROVENT [Suspect]
     Indication: CHRONIC OBSTRUCTIVE PULMONARY DISEASE
     Dosage: SEVERAL TIMES PER DAY
     Route: 055
  2. ATROVENT [Suspect]
     Indication: ASTHMA
  3. SPIRIVA [Suspect]
     Indication: CHRONIC OBSTRUCTIVE PULMONARY DISEASE
  4. SPIRIVA [Suspect]
     Indication: ASTHMA
  5. ALBUTEROL [Suspect]
     Indication: CHRONIC OBSTRUCTIVE PULMONARY DISEASE
     Dosage: OFTEN MIXED WITH ATROVENT
     Route: 055
  6. ALBUTEROL [Suspect]
     Indication: ASTHMA
  7. BRONCHORETARD [Suspect]
     Indication: CHRONIC OBSTRUCTIVE PULMONARY DISEASE
  8. BRONCHORETARD [Suspect]
     Indication: ASTHMA
  9. FORMOTEROL FUMARATE [Suspect]
     Indication: CHRONIC OBSTRUCTIVE PULMONARY DISEASE
  10. FORMOTEROL FUMARATE [Suspect]
     Indication: ASTHMA
  11. CORTISONE ACETATE [Suspect]
     Indication: CHRONIC OBSTRUCTIVE PULMONARY DISEASE
     Dosage: 5 TO 20 MG
  12. CORTISONE ACETATE [Suspect]
     Indication: ASTHMA

REACTIONS (2)
  - ASTHMA [None]
  - CHRONIC OBSTRUCTIVE PULMONARY DISEASE [None]
